FAERS Safety Report 18372904 (Version 1)
Quarter: 2020Q4

REPORT INFORMATION
  Report Type: Spontaneous
  Country: FR (occurrence: FR)
  Receive Date: 20201012
  Receipt Date: 20201012
  Transmission Date: 20210114
  Serious: Yes (Hospitalization)
  Sender: FDA-Public Use
  Company Number: FR-PFIZER INC-2020386276

PATIENT
  Age: 81 Year
  Sex: Female
  Weight: 52 kg

DRUGS (3)
  1. NEGABAN [Suspect]
     Active Substance: TEMOCILLIN
     Indication: ENDOCARDITIS
     Dosage: 4 G, 1X/DAY
     Route: 041
     Dates: start: 20200728, end: 20200828
  2. AMIODARONE ARROW [Suspect]
     Active Substance: AMIODARONE
     Indication: ATRIAL FIBRILLATION
     Dosage: 400 MG, 1X/DAY
     Route: 048
     Dates: start: 20200803, end: 20200818
  3. DALACINE [Suspect]
     Active Substance: CLINDAMYCIN
     Indication: ENDOCARDITIS
     Dosage: 2400 MG, 1X/DAY
     Route: 041
     Dates: start: 20200805, end: 20200828

REACTIONS (1)
  - Cutaneous vasculitis [Recovered/Resolved]

NARRATIVE: CASE EVENT DATE: 20200818
